FAERS Safety Report 11195511 (Version 1)
Quarter: 2015Q2

REPORT INFORMATION
  Report Type: Spontaneous
  Country: CA (occurrence: CA)
  Receive Date: 20150617
  Receipt Date: 20150617
  Transmission Date: 20150821
  Serious: Yes (Hospitalization)
  Sender: FDA-Public Use
  Company Number: CA-TEVA-571013ACC

PATIENT
  Age: 89 Year
  Sex: Male
  Weight: 74 kg

DRUGS (19)
  1. HYDROCORTISONE. [Concomitant]
     Active Substance: HYDROCORTISONE
     Dosage: UNKNOWN FORM STRENGTH
     Route: 065
  2. METOPROLOL [Concomitant]
     Active Substance: METOPROLOL
     Dosage: UNKNOWN FORM STRENGTH
     Route: 065
  3. QUININE [Suspect]
     Active Substance: QUININE
     Indication: MUSCLE SPASMS
     Dosage: 200 MILLIGRAM DAILY;
     Route: 065
  4. CLONAZEPAM. [Concomitant]
     Active Substance: CLONAZEPAM
     Dosage: UNKNOWN FORM STRENGTH
     Route: 065
  5. FUROSEMIDE. [Concomitant]
     Active Substance: FUROSEMIDE
     Dosage: UNKNOWN FORM STRENGTH
     Route: 065
  6. SALBUTAMOL [Concomitant]
     Active Substance: ALBUTEROL
     Dosage: UNKNOWN FORM STRENGTH
     Route: 065
  7. ALLOPURINOL. [Concomitant]
     Active Substance: ALLOPURINOL
     Dosage: UNKNOWN FORM STRENGTH
     Route: 065
  8. CHOLECALCIFEROL [Concomitant]
     Active Substance: CHOLECALCIFEROL
     Dosage: UNKNOWN FORM STRENGTH
     Route: 065
  9. WARFARIN [Concomitant]
     Active Substance: WARFARIN
     Dosage: UNKNOWN FORM STRENGTH
     Route: 065
  10. ATORVASTATIN CALCIUM. [Concomitant]
     Active Substance: ATORVASTATIN CALCIUM
     Dosage: UNKNOWN FORM STRENGTH
     Route: 065
  11. TAMSULOSIN [Concomitant]
     Active Substance: TAMSULOSIN
     Dosage: UNKNOWN FORM STRENGTH
     Route: 065
  12. WARFARIN [Concomitant]
     Active Substance: WARFARIN
     Dosage: UNKNOWN FORM STRENGTH
     Route: 065
  13. TAMOXIFEN [Concomitant]
     Active Substance: TAMOXIFEN
     Dosage: UNKNOWN FORM STRENGTH
     Route: 065
  14. CALCIUM CARBONATE. [Concomitant]
     Active Substance: CALCIUM CARBONATE
     Dosage: UNKNOWN FORM STRENGTH
     Route: 065
  15. CLOTRIMAZOLE. [Concomitant]
     Active Substance: CLOTRIMAZOLE
     Dosage: UNKNOWN FORM STRENGTH
     Route: 065
  16. PANTOPRAZOLE [Concomitant]
     Active Substance: PANTOPRAZOLE SODIUM
     Dosage: UNKNOWN FORM STRENGTH
     Route: 065
  17. FLUTICASONE [Concomitant]
     Active Substance: FLUTICASONE\FLUTICASONE PROPIONATE
     Dosage: UNKNOWN FORM STRENGTH
     Route: 065
  18. NITROGLYCERIN. [Concomitant]
     Active Substance: NITROGLYCERIN
     Dosage: UNKNOWN FORM STRENGTH
     Route: 065
  19. POTASSIUM CHLORIDE. [Concomitant]
     Active Substance: POTASSIUM CHLORIDE
     Dosage: UNKNOWN FORM STRENGTH
     Route: 065

REACTIONS (3)
  - Anaemia [Unknown]
  - Bone marrow failure [Unknown]
  - Haemoglobin decreased [Unknown]
